FAERS Safety Report 7837251-X (Version None)
Quarter: 2011Q4

REPORT INFORMATION
  Report Type: 
  Country: None (occurrence: None)
  Receive Date: 20111024
  Receipt Date: 20110324
  Transmission Date: 20120403
  Serious: No
  Sender: FDA-Public Use
  Company Number: US-ABBOTT-11P-163-0714611-00

PATIENT
  Sex: Female
  Weight: 65.83 kg

DRUGS (6)
  1. LUPRON DEPOT [Suspect]
     Indication: ENDOMETRIOSIS
     Dates: start: 20070101
  2. LUPRON DEPOT [Suspect]
  3. TOPAMAX [Concomitant]
     Indication: MIGRAINE
  4. CLONOPIN [Concomitant]
     Indication: PRODUCT USED FOR UNKNOWN INDICATION
  5. VIT D [Concomitant]
     Indication: VITAMIN SUPPLEMENTATION
  6. LEXAPRO [Concomitant]
     Indication: PRODUCT USED FOR UNKNOWN INDICATION

REACTIONS (4)
  - NIGHT SWEATS [None]
  - HOT FLUSH [None]
  - MOOD SWINGS [None]
  - BLOOD OESTROGEN DECREASED [None]
